FAERS Safety Report 24989398 (Version 2)
Quarter: 2025Q1

REPORT INFORMATION
  Report Type: Report from Study
  Country: US (occurrence: US)
  Receive Date: 20250220
  Receipt Date: 20250310
  Transmission Date: 20250408
  Serious: Yes (Other)
  Sender: TAKEDA
  Company Number: US-TAKEDA-US202019521

PATIENT
  Age: 67 Year
  Sex: Female

DRUGS (10)
  1. LANADELUMAB [Suspect]
     Active Substance: LANADELUMAB
     Indication: Immune system disorder
     Dosage: 300 MILLIGRAM, Q2WEEKS
     Dates: start: 202304
  2. LANADELUMAB [Suspect]
     Active Substance: LANADELUMAB
  3. LANADELUMAB [Suspect]
     Active Substance: LANADELUMAB
  4. FIRAZYR [Suspect]
     Active Substance: ICATIBANT ACETATE
     Indication: Immune system disorder
  5. FIRAZYR [Suspect]
     Active Substance: ICATIBANT ACETATE
  6. CLARITIN [Concomitant]
     Active Substance: LORATADINE
  7. METOPROLOL SUCCINATE [Concomitant]
     Active Substance: METOPROLOL SUCCINATE
  8. EPINEPHRINE [Concomitant]
     Active Substance: EPINEPHRINE
  9. ICATIBANT ACETATE [Concomitant]
     Active Substance: ICATIBANT ACETATE
  10. ICATIBANT [Concomitant]
     Active Substance: ICATIBANT ACETATE

REACTIONS (12)
  - Syncope [Unknown]
  - Weight decreased [Unknown]
  - Ear infection [Unknown]
  - Weight increased [Unknown]
  - Fall [Unknown]
  - Inappropriate schedule of product administration [Unknown]
  - Product dose omission issue [Unknown]
  - Hereditary angioedema [Recovered/Resolved]
  - Injection site swelling [Not Recovered/Not Resolved]
  - Injection site pruritus [Not Recovered/Not Resolved]
  - Injection site bruising [Unknown]
  - Dizziness [Unknown]

NARRATIVE: CASE EVENT DATE: 20230606
